FAERS Safety Report 21241801 (Version 1)
Quarter: 2022Q3

REPORT INFORMATION
  Report Type: Spontaneous
  Country: US (occurrence: US)
  Receive Date: 20220823
  Receipt Date: 20220823
  Transmission Date: 20221027
  Serious: Yes (Other)
  Sender: FDA-Public Use
  Company Number: US-SA-SAC20220811002153

PATIENT
  Age: 46 Year
  Sex: Female

DRUGS (1)
  1. ZANTAC [Suspect]
     Active Substance: RANITIDINE HYDROCHLORIDE
     Dosage: UNK (FREQUENCY: OTHER)
     Route: 065
     Dates: start: 199001, end: 200912

REACTIONS (2)
  - Renal cancer [Unknown]
  - Colorectal cancer stage I [Unknown]

NARRATIVE: CASE EVENT DATE: 20100201
